FAERS Safety Report 6678675-6 (Version None)
Quarter: 2010Q2

REPORT INFORMATION
  Report Type: 
  Country: None (occurrence: None)
  Receive Date: 20100413
  Receipt Date: 20100331
  Transmission Date: 20101027
  Serious: Yes (Other)
  Sender: FDA-Public Use
  Company Number: US-PFIZER INC-2010042065

PATIENT
  Sex: Female
  Weight: 63.492 kg

DRUGS (10)
  1. ZOLOFT [Suspect]
     Indication: DEPRESSION
     Dosage: 100 MG, DAILY
     Route: 048
     Dates: start: 20070101
  2. NEURONTIN [Suspect]
     Indication: PAIN
     Dosage: 300 MG, 3X/DAY
     Route: 048
     Dates: start: 20080101
  3. CHANTIX [Suspect]
     Indication: SMOKING CESSATION THERAPY
     Dosage: 0.5 MG, 1X/DAY
     Route: 048
     Dates: start: 20090201, end: 20090301
  4. PREVACID [Concomitant]
     Indication: HYPERCHLORHYDRIA
     Dosage: UNK
  5. TOPROL-XL [Concomitant]
     Indication: MYOCARDIAL INFARCTION
     Dosage: UNK
  6. LORTAB [Concomitant]
     Indication: FIBROMYALGIA
     Dosage: UNK
  7. LORTAB [Concomitant]
     Indication: RHEUMATOID ARTHRITIS
  8. CYCLOBENZAPRINE [Concomitant]
     Indication: MYOSITIS
     Dosage: UNK
  9. ZOCOR [Concomitant]
     Indication: BLOOD CHOLESTEROL INCREASED
     Dosage: UNK
  10. ALTACE [Concomitant]
     Indication: HEART RATE IRREGULAR
     Dosage: UNK

REACTIONS (2)
  - DIABETES MELLITUS [None]
  - PAIN [None]
